FAERS Safety Report 4832285-1 (Version None)
Quarter: 2005Q4

REPORT INFORMATION
  Report Type: 
  Country: None (occurrence: None)
  Receive Date: 20051116
  Receipt Date: 20051116
  Transmission Date: 20060501
  Serious: Yes (Hospitalization)
  Sender: FDA-Public Use
  Company Number: None

PATIENT
  Age: 41 Year
  Sex: Female
  Weight: 62.5964 kg

DRUGS (5)
  1. GLEEVEC [Suspect]
     Indication: BREAST CANCER METASTATIC
     Dosage: 400 MG BID PO
     Route: 048
     Dates: start: 20051005, end: 20051027
  2. TAXOL [Suspect]
     Indication: BREAST CANCER METASTATIC
     Dosage: 100 MG /M2 IV
     Route: 042
     Dates: start: 20051007, end: 20051021
  3. LOVENOX [Concomitant]
  4. PREVACID [Concomitant]
  5. BENZONATATE [Concomitant]

REACTIONS (4)
  - ANAEMIA [None]
  - DISEASE PROGRESSION [None]
  - PLEURAL EFFUSION [None]
  - PULMONARY EMBOLISM [None]
